FAERS Safety Report 15714027 (Version 1)
Quarter: 2018Q4

REPORT INFORMATION
  Report Type: Spontaneous
  Country: US (occurrence: US)
  Receive Date: 20181212
  Receipt Date: 20181212
  Transmission Date: 20190205
  Serious: Yes (Other)
  Sender: FDA-Public Use
  Company Number: US-SUNOVION-2018SUN004781

PATIENT
  Age: 22 Year
  Sex: Female
  Weight: 65.76 kg

DRUGS (3)
  1. ESCITALOPRAM [Concomitant]
     Active Substance: ESCITALOPRAM OXALATE
     Dosage: 10 MG, QD
     Route: 048
  2. BUPROPION. [Concomitant]
     Active Substance: BUPROPION
     Dosage: 300 MG, QD
     Route: 048
  3. LATUDA [Suspect]
     Active Substance: LURASIDONE HYDROCHLORIDE
     Indication: BIPOLAR DISORDER
     Dosage: 20 MG, 1 TABLET
     Route: 048

REACTIONS (2)
  - Suicidal ideation [Unknown]
  - Depression [Unknown]
